FAERS Safety Report 7571387-6 (Version None)
Quarter: 2011Q2

REPORT INFORMATION
  Report Type: 
  Country: None (occurrence: None)
  Receive Date: 20110624
  Receipt Date: 20110607
  Transmission Date: 20111010
  Serious: No
  Sender: FDA-Public Use
  Company Number: US-B.I. PHARMACEUTICALS,INC./RIDGEFIELD-2011-BP-14083BP

PATIENT
  Sex: Female

DRUGS (25)
  1. PRADAXA [Suspect]
     Route: 048
  2. ATARAX [Concomitant]
     Indication: PRURITUS
  3. PLETAL [Concomitant]
     Indication: BACK PAIN
     Dosage: 100 MG
     Route: 048
  4. ZEGERID [Concomitant]
     Indication: GASTROOESOPHAGEAL REFLUX DISEASE
     Dosage: 40 MG
     Route: 048
  5. LIDODERM [Concomitant]
     Indication: BACK PAIN
     Route: 061
  6. PRADAXA [Suspect]
     Indication: ATRIAL FIBRILLATION
     Dosage: 300 MG
     Route: 048
     Dates: start: 20110501, end: 20110508
  7. MICARDIS [Suspect]
     Indication: HYPERTENSION
     Dosage: 40 MG
     Route: 048
     Dates: start: 20080101
  8. ATARAX [Concomitant]
     Indication: HYPERSENSITIVITY
     Dosage: 25 MG
     Route: 048
  9. LOMOTIL [Concomitant]
     Indication: DIARRHOEA
  10. LASIX [Concomitant]
     Indication: FLUID RETENTION
     Dosage: 40 MG
     Route: 048
  11. XANAX [Concomitant]
     Indication: ANXIETY
     Dosage: 2 MG
     Route: 048
  12. OPANA [Concomitant]
     Indication: BACK PAIN
     Dosage: 40 MG
     Route: 048
  13. LOMOTIL [Concomitant]
     Indication: GASTROOESOPHAGEAL REFLUX DISEASE
     Route: 048
  14. ANTIVERT [Concomitant]
     Indication: VERTIGO
  15. XOPENEX [Concomitant]
     Indication: ASTHMA
     Dosage: 1.25 MG
     Route: 055
  16. ZOFRAN [Concomitant]
     Indication: GASTROOESOPHAGEAL REFLUX DISEASE
     Dosage: 4 MG
     Route: 048
  17. CRESTOR [Concomitant]
     Indication: BLOOD CHOLESTEROL INCREASED
     Dosage: 10 MG
     Route: 048
  18. SOMA [Concomitant]
     Indication: BACK PAIN
     Dosage: 350 MG
     Route: 048
  19. ADVAIR DISKUS 100/50 [Concomitant]
     Indication: ASTHMA
     Route: 055
  20. NORCO [Concomitant]
     Indication: BACK PAIN
     Dosage: 20 MG
     Route: 048
  21. PLETAL [Concomitant]
     Indication: LIMB INJURY
  22. ZOFRAN [Concomitant]
     Indication: NAUSEA
  23. LEVOTHYROXINE SODIUM [Concomitant]
     Indication: HYPOTHYROIDISM
     Dosage: 75 MCG
     Route: 048
  24. SYMBICORT [Concomitant]
     Indication: ASTHMA
     Route: 055
  25. ANTIVERT [Concomitant]
     Indication: GASTROOESOPHAGEAL REFLUX DISEASE
     Dosage: 25 MG
     Route: 048

REACTIONS (8)
  - NAUSEA [None]
  - DYSPNOEA [None]
  - PALPITATIONS [None]
  - TACHYCARDIA [None]
  - CONTUSION [None]
  - DYSPHAGIA [None]
  - DISORIENTATION [None]
  - DIZZINESS [None]
